FAERS Safety Report 4494550-X (Version None)
Quarter: 2004Q4

REPORT INFORMATION
  Report Type: 
  Country: None (occurrence: None)
  Receive Date: 20041103
  Receipt Date: 20041022
  Transmission Date: 20050328
  Serious: Yes (Hospitalization)
  Sender: FDA-Public Use
  Company Number: 230002M04HUN

PATIENT
  Age: 47 Year
  Sex: Female

DRUGS (7)
  1. REBIF [Suspect]
     Indication: MULTIPLE SCLEROSIS
     Dosage: 44 MCG, 3 IN 1 WEEKS, SUBCUTANEOUS
     Route: 058
     Dates: start: 20031112
  2. METOPROLOL [Concomitant]
  3. AMLODIPINE [Concomitant]
  4. PRAZOSIN HCL [Concomitant]
  5. DIGOXIN [Concomitant]
  6. CITALOPRAM [Concomitant]
  7. OXYBUTYNIN [Concomitant]

REACTIONS (5)
  - ERYSIPELAS [None]
  - INJECTION SITE ABSCESS [None]
  - INJECTION SITE ERYTHEMA [None]
  - SKIN BLEEDING [None]
  - ULCER [None]
